FAERS Safety Report 7950629-9 (Version None)
Quarter: 2011Q4

REPORT INFORMATION
  Report Type: 
  Country: None (occurrence: None)
  Receive Date: 20111130
  Receipt Date: 20111121
  Transmission Date: 20120403
  Serious: Yes (Hospitalization, Other)
  Sender: FDA-Public Use
  Company Number: JP-ROCHE-790081

PATIENT
  Sex: Male
  Weight: 52.8 kg

DRUGS (26)
  1. INFLIXIMAB [Suspect]
     Dosage: 6TH ADMINISTRATION
     Route: 065
  2. KETOPROFEN [Concomitant]
  3. MISOPROSTOL [Concomitant]
  4. LOSARTAN POTASSIUM [Concomitant]
  5. INFLIXIMAB [Concomitant]
     Dates: start: 20110323
  6. INFLIXIMAB [Suspect]
     Indication: PRODUCT USED FOR UNKNOWN INDICATION
     Route: 065
  7. FOLIC ACID [Concomitant]
  8. ATORVASTATIN CALCIUM [Concomitant]
  9. AMLODIPINE BESYLATE [Concomitant]
     Dosage: DRUG REPORTED AS AMLODIPINE BESILATE
  10. ROSUVASTATIN CALCIUM [Concomitant]
  11. URSODIOL [Concomitant]
  12. OCRELIZUMAB [Suspect]
     Dosage: DAY 15, SECOND ADMINISTRATION
     Route: 042
     Dates: start: 20090304, end: 20090304
  13. OCRELIZUMAB [Suspect]
     Dosage: WEEK 24, FOURTH ADMINISTRATION
     Route: 042
     Dates: start: 20090819, end: 20090819
  14. METHOTREXATE [Concomitant]
  15. MELOXICAM [Concomitant]
  16. LANSOPRAZOLE [Concomitant]
  17. ZOPICLONE [Concomitant]
  18. TRIAZOLAM [Concomitant]
  19. CLARITHROMYCIN [Concomitant]
  20. OCRELIZUMAB [Suspect]
     Dosage: WEEK 24, THIRD ADMINISTRATION
     Route: 042
     Dates: start: 20090806, end: 20090806
  21. INFLIXIMAB [Suspect]
     Dosage: 7TH ADMINISTRATION
     Route: 065
  22. TEPRENONE [Concomitant]
  23. ALLOPURINOL [Concomitant]
  24. PREDNISOLONE [Concomitant]
  25. OCRELIZUMAB [Suspect]
     Indication: RHEUMATOID ARTHRITIS
     Dosage: FORM: INFUSION; FORM AND FREQUENCY PER PROTOCOL; LAST DOSE PRIOR TO SAE: 19 AUGUST 2009; DAY 1
     Route: 042
     Dates: start: 20090218, end: 20090218
  26. ACTEMRA [Suspect]
     Indication: PRODUCT USED FOR UNKNOWN INDICATION
     Route: 065
     Dates: start: 20100120, end: 20100901

REACTIONS (1)
  - GASTRIC CANCER [None]
